FAERS Safety Report 10996640 (Version 4)
Quarter: 2015Q2

REPORT INFORMATION
  Report Type: Report from Study
  Country: AR (occurrence: AR)
  Receive Date: 20150408
  Receipt Date: 20150518
  Transmission Date: 20150821
  Serious: Yes (Death, Hospitalization)
  Sender: FDA-Public Use
  Company Number: AR-BIOGENIDEC-2015BI043074

PATIENT
  Age: 67 Year
  Sex: Male

DRUGS (4)
  1. AVONEX [Suspect]
     Active Substance: INTERFERON BETA-1A
     Indication: MULTIPLE SCLEROSIS
     Route: 030
     Dates: start: 201308, end: 20150325
  2. ENALAPRIL [Concomitant]
     Active Substance: ENALAPRIL
  3. BACLOFEN. [Concomitant]
     Active Substance: BACLOFEN
  4. AVONEX [Suspect]
     Active Substance: INTERFERON BETA-1A
     Indication: MULTIPLE SCLEROSIS
     Route: 030
     Dates: start: 201209, end: 201308

REACTIONS (4)
  - Supraventricular tachyarrhythmia [Unknown]
  - Acute myocardial infarction [Unknown]
  - Cardiac arrest [Fatal]
  - Ventricular fibrillation [Unknown]

NARRATIVE: CASE EVENT DATE: 20150325
